FAERS Safety Report 5043857-6 (Version None)
Quarter: 2006Q2

REPORT INFORMATION
  Report Type: 
  Country: None (occurrence: None)
  Receive Date: 20060629
  Receipt Date: 20060614
  Transmission Date: 20061013
  Serious: Yes (Death)
  Sender: FDA-Public Use
  Company Number: ALMO2006058

PATIENT
  Age: 78 Year
  Sex: Female

DRUGS (1)
  1. AXERT [Suspect]

REACTIONS (1)
  - DEATH [None]
